FAERS Safety Report 4803461-9 (Version None)
Quarter: 2005Q4

REPORT INFORMATION
  Report Type: 
  Country: None (occurrence: None)
  Receive Date: 20051019
  Receipt Date: 20050928
  Transmission Date: 20060501
  Serious: Yes (Other)
  Sender: FDA-Public Use
  Company Number: PHFR2005GB03234

PATIENT
  Age: 67 Year
  Sex: Female
  Weight: 57 kg

DRUGS (3)
  1. CARBAMAZEPINE [Suspect]
     Indication: EPILEPSY
     Dosage: 600MG/DAY
     Route: 065
     Dates: start: 20020901, end: 20050101
  2. CALCIUM WITH VITAMIN D [Concomitant]
     Indication: OSTEOPOROSIS
     Dosage: 2 TABLETS DAILY
     Route: 048
  3. RISEDRONATE SODIUM [Concomitant]
     Dosage: 35 MG, QW
     Route: 048

REACTIONS (2)
  - B-CELL LYMPHOMA [None]
  - LYMPHADENOPATHY [None]
